FAERS Safety Report 9653536 (Version 1)
Quarter: 2013Q4

REPORT INFORMATION
  Report Type: Spontaneous
  Country: US (occurrence: US)
  Receive Date: 20131029
  Receipt Date: 20131029
  Transmission Date: 20140711
  Serious: No
  Sender: FDA-Public Use
  Company Number: US-BIOGENIDEC-2013BI079448

PATIENT
  Age: 57 Year
  Sex: Female

DRUGS (7)
  1. TECFIDERA [Suspect]
     Indication: MULTIPLE SCLEROSIS
     Route: 048
  2. TECFIDERA [Suspect]
     Indication: MULTIPLE SCLEROSIS
     Route: 048
     Dates: start: 20130729, end: 20130805
  3. POT BICARB [Concomitant]
  4. BUTALBITAL-ACETAMINOPHEN [Concomitant]
  5. OXYBUTYNIN [Concomitant]
  6. POT CHLORIDE [Concomitant]
  7. AVONEX [Concomitant]
     Indication: MULTIPLE SCLEROSIS
     Route: 030
     Dates: start: 20130814

REACTIONS (7)
  - Oropharyngeal pain [Recovered/Resolved]
  - Cough [Recovered/Resolved]
  - Chest discomfort [Unknown]
  - Micturition urgency [Unknown]
  - Hypersensitivity [Unknown]
  - Vomiting [Unknown]
  - Chest pain [Recovered/Resolved]
